FAERS Safety Report 15561531 (Version 1)
Quarter: 2018Q4

REPORT INFORMATION
  Report Type: Report from Study
  Country: DE (occurrence: DE)
  Receive Date: 20181029
  Receipt Date: 20181029
  Transmission Date: 20190205
  Serious: Yes (Other)
  Sender: FDA-Public Use
  Company Number: DE-PFIZER INC-2018434705

PATIENT
  Age: 66 Year
  Sex: Male
  Weight: 52 kg

DRUGS (28)
  1. FLUOROURACIL. [Suspect]
     Active Substance: FLUOROURACIL
     Indication: COLORECTAL CANCER METASTATIC
     Dosage: 650 MG, UNK
     Route: 040
     Dates: start: 20171013
  2. FLUOROURACIL. [Suspect]
     Active Substance: FLUOROURACIL
     Dosage: 3800 MG, UNK
     Route: 042
     Dates: start: 20180126
  3. FLUOROURACIL. [Suspect]
     Active Substance: FLUOROURACIL
     Dosage: 650 MG, UNK
     Route: 042
     Dates: start: 20180322
  4. PANITUMUMAB [Suspect]
     Active Substance: PANITUMUMAB
     Indication: COLORECTAL CANCER METASTATIC
     Dosage: 360 MG, UNK
     Route: 042
     Dates: start: 20171027
  5. LOPERAMID [Concomitant]
     Active Substance: LOPERAMIDE
     Indication: DIARRHOEA
     Dosage: 2 MG, AS NEEDED
     Route: 048
     Dates: start: 20171211
  6. IRINOTECAN [Suspect]
     Active Substance: IRINOTECAN
     Dosage: 250 MG, UNK
     Route: 065
     Dates: start: 20180405
  7. PALLADON [Concomitant]
     Active Substance: HYDROMORPHONE
     Indication: PAIN
     Dosage: 2.6 MG, AS NECESSARY
     Route: 048
     Dates: start: 20171007
  8. NYSTATIN. [Concomitant]
     Active Substance: NYSTATIN
     Indication: FUNGAL INFECTION
     Dosage: UNK UNK, AS NECESSARY
     Route: 061
     Dates: start: 20180817
  9. CALCIUM FOLINATE [Suspect]
     Active Substance: LEUCOVORIN CALCIUM
     Indication: BREAST CANCER METASTATIC
     Dosage: 650 MG, UNK
     Route: 065
     Dates: start: 20171013
  10. CALCIUM FOLINATE [Suspect]
     Active Substance: LEUCOVORIN CALCIUM
     Dosage: 650 MG, UNK
     Route: 065
     Dates: start: 20180405
  11. FLUOROURACIL. [Suspect]
     Active Substance: FLUOROURACIL
     Dosage: 3600 MG, UNK
     Route: 042
     Dates: start: 20180405
  12. FLUOROURACIL. [Suspect]
     Active Substance: FLUOROURACIL
     Dosage: 3800 MG, UNK
     Route: 042
     Dates: start: 20180517
  13. PANITUMUMAB [Suspect]
     Active Substance: PANITUMUMAB
     Dosage: 260 MG, UNK
     Route: 042
     Dates: start: 20180921
  14. PANTOPRAZOL [PANTOPRAZOLE] [Concomitant]
     Indication: GASTRITIS PROPHYLAXIS
     Dosage: 40 MG, 1X/DAY
     Route: 048
  15. ARIXTRA [Concomitant]
     Active Substance: FONDAPARINUX SODIUM
     Indication: THROMBOSIS
     Dosage: 7.5 MG, QD
     Route: 058
     Dates: start: 20180114
  16. CALCIUM FOLINATE [Suspect]
     Active Substance: LEUCOVORIN CALCIUM
     Dosage: 250 MG, UNK
     Route: 065
     Dates: start: 20180322
  17. FLUOROURACIL. [Suspect]
     Active Substance: FLUOROURACIL
     Dosage: 3600 MG, UNK
     Route: 042
     Dates: start: 20171013
  18. IRINOTECAN [Suspect]
     Active Substance: IRINOTECAN
     Indication: COLORECTAL CANCER METASTATIC
     Dosage: 250 MG, UNK
     Route: 065
     Dates: start: 20171013
  19. ACETYLSALICYLIC ACID [Concomitant]
     Active Substance: ASPIRIN
     Indication: HAEMODILUTION
     Dosage: 100 MG, QD
     Route: 048
  20. CALCIUMCARBONAT [Concomitant]
     Indication: MINERAL SUPPLEMENTATION
     Dosage: 1 UNK, BID
     Route: 048
  21. PANITUMUMAB [Suspect]
     Active Substance: PANITUMUMAB
     Dosage: 350 MG, UNK
     Route: 042
     Dates: start: 20180621
  22. PLIAZON [PHYTOMENADIONE;UREA] [Concomitant]
     Indication: ACNE
     Dosage: UNK, AS NEEDED
     Route: 061
     Dates: start: 20180517
  23. NOVAMINSULFON [Concomitant]
     Active Substance: METAMIZOLE
     Indication: PAIN
     Dosage: 40 UNK, QD
     Route: 048
     Dates: start: 20171110
  24. IRINOTECAN [Suspect]
     Active Substance: IRINOTECAN
     Dosage: 3800 MG, UNK
     Route: 065
     Dates: start: 20180322
  25. MINOCYCLINE [Concomitant]
     Active Substance: MINOCYCLINE\MINOCYCLINE HYDROCHLORIDE
     Indication: PROPHYLACTIC CHEMOTHERAPY
     Dosage: 50 MG, QD
     Route: 048
     Dates: start: 20171110
  26. CONCOR [Concomitant]
     Active Substance: BISOPROLOL FUMARATE
     Indication: BLOOD PRESSURE MEASUREMENT
     Dosage: 2.5 MG, QD
     Route: 048
     Dates: start: 20180114
  27. RAMIPRIL. [Concomitant]
     Active Substance: RAMIPRIL
     Indication: BLOOD PRESSURE MEASUREMENT
     Dosage: 25 MG, QD
     Route: 048
  28. VITAMIN D3 [Concomitant]
     Active Substance: CHOLECALCIFEROL
     Indication: VITAMIN SUPPLEMENTATION
     Dosage: 1 UNK, BID
     Route: 048

REACTIONS (1)
  - Rash [Not Recovered/Not Resolved]

NARRATIVE: CASE EVENT DATE: 20180831
